FAERS Safety Report 5875404-0 (Version None)
Quarter: 2008Q3

REPORT INFORMATION
  Report Type: 
  Country: None (occurrence: None)
  Receive Date: 20080909
  Receipt Date: 20080905
  Transmission Date: 20090109
  Serious: Yes (Life-Threatening, Hospitalization)
  Sender: FDA-Public Use
  Company Number: US-BAYER-200823777NA

PATIENT
  Age: 49 Year
  Sex: Female
  Weight: 54 kg

DRUGS (1)
  1. MAGNEVIST [Suspect]
     Indication: NUCLEAR MAGNETIC RESONANCE IMAGING
     Dosage: TOTAL DAILY DOSE: 20 ML
     Route: 042
     Dates: start: 20071205, end: 20071205

REACTIONS (8)
  - BLOOD PRESSURE INCREASED [None]
  - CONVULSION [None]
  - CRYING [None]
  - DYSKINESIA [None]
  - DYSPNOEA [None]
  - SPEECH DISORDER [None]
  - TACHYPNOEA [None]
  - TREMOR [None]
